FAERS Safety Report 24913824 (Version 1)
Quarter: 2025Q1

REPORT INFORMATION
  Report Type: Spontaneous
  Country: IT (occurrence: IT)
  Receive Date: 20250202
  Receipt Date: 20250202
  Transmission Date: 20250409
  Serious: Yes (Hospitalization, Other)
  Sender: DR REDDYS
  Company Number: IT-GERMAN-ITA/2025/01/001275

PATIENT
  Age: 69 Year
  Sex: Male

DRUGS (4)
  1. DAPTOMYCIN [Suspect]
     Active Substance: DAPTOMYCIN
     Indication: Endocarditis staphylococcal
     Dates: start: 20190308
  2. DAPTOMYCIN [Suspect]
     Active Substance: DAPTOMYCIN
     Dates: start: 20190328
  3. OXACILLIN [Concomitant]
     Active Substance: OXACILLIN SODIUM
     Indication: Endocarditis staphylococcal
     Route: 042
  4. RIFAMPIN [Concomitant]
     Active Substance: RIFAMPIN
     Indication: Endocarditis staphylococcal
     Route: 042

REACTIONS (2)
  - Eosinophilic pneumonia [Recovered/Resolved]
  - Drug ineffective [Unknown]
